FAERS Safety Report 19285594 (Version 1)
Quarter: 2021Q2

REPORT INFORMATION
  Report Type: Spontaneous
  Country: US (occurrence: US)
  Receive Date: 20210521
  Receipt Date: 20210521
  Transmission Date: 20210717
  Serious: No
  Sender: FDA-Public Use
  Company Number: US-RADIUS HEALTH INC.-2019US001567

PATIENT
  Sex: Female

DRUGS (2)
  1. TYMLOS [Suspect]
     Active Substance: ABALOPARATIDE
     Indication: OSTEOPOROSIS POSTMENOPAUSAL
     Dosage: 80 MCG, QD
     Route: 058
     Dates: start: 20190504
  2. TYMLOS [Suspect]
     Active Substance: ABALOPARATIDE
     Dosage: 30 MCG, QD
     Route: 058

REACTIONS (4)
  - Tumour marker increased [Unknown]
  - Multiple use of single-use product [Recovered/Resolved]
  - Product use issue [Unknown]
  - Product dose omission issue [Unknown]
